FAERS Safety Report 9491606 (Version 1)
Quarter: 2013Q3

REPORT INFORMATION
  Report Type: Spontaneous
  Country: FR (occurrence: FR)
  Receive Date: 20130830
  Receipt Date: 20130830
  Transmission Date: 20140515
  Serious: Yes (Hospitalization)
  Sender: FDA-Public Use
  Company Number: FR-NOVOPROD-386139

PATIENT
  Age: 59 Year
  Sex: Male

DRUGS (14)
  1. VICTOZA [Suspect]
     Indication: TYPE 2 DIABETES MELLITUS
     Dosage: 0.6 MG, QD
     Route: 058
     Dates: start: 20130627, end: 20130627
  2. SEROPLEX [Suspect]
     Indication: PRODUCT USED FOR UNKNOWN INDICATION
     Dosage: 5 MG, QD
     Route: 065
     Dates: start: 20130628, end: 20130628
  3. NOVORAPID [Concomitant]
     Indication: TYPE 2 DIABETES MELLITUS
     Dosage: UNK
     Route: 065
  4. KARDEGIC [Concomitant]
  5. INEXIUM                            /01479302/ [Concomitant]
  6. GLUCOPHAGE [Concomitant]
     Dosage: 3000 MG, QD
  7. TAHOR [Concomitant]
     Dosage: 40 MG, QD
  8. TRIATEC                            /00116401/ [Concomitant]
     Dosage: 10 MG, QD
  9. CARDENSIEL [Concomitant]
     Dosage: 5 MG, QD
  10. ZYLORIC [Concomitant]
     Dosage: 300 MG, QD
  11. AMLOR [Concomitant]
     Dosage: 10 MG, QD
  12. COLCHIMAX                          /00728901/ [Concomitant]
  13. TARDYFERON B9                      /00023601/ [Concomitant]
  14. LAROXYL [Concomitant]
     Indication: MAJOR DEPRESSION
     Dosage: 19 DROPS IN THE EVENING
     Dates: start: 20130627

REACTIONS (3)
  - Loss of consciousness [Recovering/Resolving]
  - Malaise [Recovering/Resolving]
  - Headache [Recovering/Resolving]
